FAERS Safety Report 9602153 (Version 2)
Quarter: 2013Q4

REPORT INFORMATION
  Report Type: Spontaneous
  Country: PT (occurrence: None)
  Receive Date: 20131002
  Receipt Date: 20131125
  Transmission Date: 20140711
  Serious: Yes (Other)
  Sender: FDA-Public Use
  Company Number: 2013P1019755

PATIENT
  Age: 31 Year
  Sex: Female

DRUGS (6)
  1. HYDROXYCHLOROQUINE [Suspect]
     Indication: SYSTEMIC LUPUS ERYTHEMATOSUS
     Dates: start: 2009
  2. UNSPECIFIED STEROIDS [Concomitant]
  3. METHOTREXATE [Concomitant]
  4. AZATHIOPRINE [Concomitant]
  5. MYCOPHENOLATE [Concomitant]
  6. MOFETIL [Concomitant]

REACTIONS (3)
  - Lipidosis [None]
  - Fabry^s disease [None]
  - Nephropathy [None]
